FAERS Safety Report 6239209-3 (Version None)
Quarter: 2009Q2

REPORT INFORMATION
  Report Type: 
  Country: None (occurrence: None)
  Receive Date: 20090622
  Receipt Date: 20090608
  Transmission Date: 20091009
  Serious: Yes (Hospitalization)
  Sender: FDA-Public Use
  Company Number: FR-PFIZER INC-2009223709

PATIENT
  Age: 32 Year

DRUGS (10)
  1. NEURONTIN [Suspect]
     Dosage: 300 MG, 2X/DAY
     Route: 048
     Dates: start: 20090417, end: 20090515
  2. TAZOCILLINE [Suspect]
     Indication: OSTEOMYELITIS
     Dosage: 4 DF, 4X/DAY
     Route: 042
     Dates: start: 20090423, end: 20090509
  3. DOLIPRANE [Suspect]
     Dosage: 1 G, 4X/DAY
     Dates: start: 20090414, end: 20090515
  4. TARDYFERON [Concomitant]
     Dosage: UNK
     Dates: start: 20090503, end: 20090515
  5. NEXIUM [Concomitant]
     Dosage: UNK
     Dates: start: 20090424
  6. AUGMENTIN [Concomitant]
     Dosage: UNK
     Dates: start: 20090414, end: 20090422
  7. TRAMADOL [Concomitant]
     Dosage: UNK
     Dates: start: 20090414, end: 20090515
  8. MORPHINE [Concomitant]
  9. LOVENOX [Concomitant]
     Dosage: UNK
     Dates: start: 20090401
  10. KARDEGIC [Concomitant]
     Dosage: UNK
     Dates: start: 20090401

REACTIONS (5)
  - CYTOLYTIC HEPATITIS [None]
  - EOSINOPHILIA [None]
  - FORMICATION [None]
  - PYREXIA [None]
  - RASH [None]
